FAERS Safety Report 25090982 (Version 1)
Quarter: 2025Q1

REPORT INFORMATION
  Report Type: Spontaneous
  Country: BR (occurrence: BR)
  Receive Date: 20250318
  Receipt Date: 20250318
  Transmission Date: 20250409
  Serious: Yes (Death, Other)
  Sender: AMGEN
  Company Number: BR-AMGEN-BRASP2025050567

PATIENT

DRUGS (1)
  1. RITUXIMAB [Suspect]
     Active Substance: RITUXIMAB
     Indication: Idiopathic inflammatory myopathy
     Route: 065

REACTIONS (5)
  - Death [Fatal]
  - Idiopathic inflammatory myopathy [Unknown]
  - Infection [Unknown]
  - Drug effective for unapproved indication [Unknown]
  - Off label use [Unknown]
